FAERS Safety Report 7480647-9 (Version None)
Quarter: 2011Q2

REPORT INFORMATION
  Report Type: 
  Country: None (occurrence: None)
  Receive Date: 20110512
  Receipt Date: 20110512
  Transmission Date: 20111010
  Serious: No
  Sender: FDA-Public Use
  Company Number: None

PATIENT
  Sex: Female
  Weight: 54.4316 kg

DRUGS (1)
  1. DONEPEZIL [Suspect]
     Indication: MEMORY IMPAIRMENT
     Dates: start: 20110411, end: 20110412

REACTIONS (3)
  - VOMITING [None]
  - INSOMNIA [None]
  - RETCHING [None]
